FAERS Safety Report 6032989-1 (Version None)
Quarter: 2009Q1

REPORT INFORMATION
  Report Type: 
  Country: None (occurrence: None)
  Receive Date: 20090109
  Receipt Date: 20090105
  Transmission Date: 20090719
  Serious: Yes (Death)
  Sender: FDA-Public Use
  Company Number: B0550366A

PATIENT
  Age: 74 Year
  Sex: Female

DRUGS (8)
  1. REQUIP [Suspect]
     Indication: PARKINSON'S DISEASE
     Route: 048
     Dates: start: 19980101, end: 20080222
  2. CLOZAPINE [Suspect]
     Dosage: 12.5MG PER DAY
     Route: 048
     Dates: start: 20071101, end: 20080222
  3. COMTAN [Suspect]
     Indication: PARKINSON'S DISEASE
     Dosage: 800MG PER DAY
     Route: 065
     Dates: start: 20070201, end: 20080222
  4. NIFEDIPINA [Concomitant]
     Indication: HYPERTENSION
     Route: 065
  5. MADOPAR [Concomitant]
     Indication: PARKINSON'S DISEASE
     Route: 065
  6. CLONAZEPAM [Concomitant]
     Indication: DRUG USE FOR UNKNOWN INDICATION
     Route: 065
  7. L-DOPA [Concomitant]
     Indication: PARKINSON'S DISEASE
     Route: 065
     Dates: start: 19980101
  8. SEROQUEL [Concomitant]
     Route: 065
     Dates: start: 20070101

REACTIONS (4)
  - DYSSTASIA [None]
  - MALAISE [None]
  - PRESYNCOPE [None]
  - SUDDEN DEATH [None]
